FAERS Safety Report 8045320-7 (Version None)
Quarter: 2012Q1

REPORT INFORMATION
  Report Type: 
  Country: None (occurrence: None)
  Receive Date: 20120113
  Receipt Date: 20120109
  Transmission Date: 20120608
  Serious: Yes (Other)
  Sender: FDA-Public Use
  Company Number: US-MEDIMMUNE-MEDI-0014409

PATIENT
  Sex: Male

DRUGS (8)
  1. SABRIL [Concomitant]
  2. MIRALAX [Concomitant]
  3. PRILOSEC [Concomitant]
  4. VITAMIN B6 [Concomitant]
  5. SYNAGIS [Suspect]
     Route: 030
  6. KLONOPIN [Concomitant]
  7. VITAMIN D [Concomitant]
  8. LEUCOVORIN CALCIUM [Concomitant]

REACTIONS (1)
  - CONDITION AGGRAVATED [None]
